FAERS Safety Report 6893083-0 (Version None)
Quarter: 2010Q3

REPORT INFORMATION
  Report Type: 
  Country: None (occurrence: None)
  Receive Date: 20100731
  Receipt Date: 20090413
  Transmission Date: 20110219
  Serious: No
  Sender: FDA-Public Use
  Company Number: US-PFIZER INC-2009198369

PATIENT
  Sex: Female
  Weight: 59.9 kg

DRUGS (3)
  1. NEURONTIN [Suspect]
     Indication: HERPES ZOSTER
     Dosage: 300 MG, 1X/DAY
     Dates: start: 20080101
  2. ZEGERID [Concomitant]
     Dosage: UNK
  3. ESTROGENS SOL/INJ [Concomitant]
     Dosage: UNK

REACTIONS (3)
  - DRUG INEFFECTIVE [None]
  - FEELING ABNORMAL [None]
  - THINKING ABNORMAL [None]
